FAERS Safety Report 20848862 (Version 3)
Quarter: 2022Q2

REPORT INFORMATION
  Report Type: Spontaneous
  Country: US (occurrence: US)
  Receive Date: 20220519
  Receipt Date: 20220614
  Transmission Date: 20220721
  Serious: No
  Sender: FDA-Public Use
  Company Number: US-PFIZER INC-202200725397

PATIENT
  Age: 73 Year
  Sex: Female
  Weight: 68.04 kg

DRUGS (2)
  1. LATANOPROST [Suspect]
     Active Substance: LATANOPROST
     Indication: Intraocular pressure increased
     Dosage: 2 DROP, 1X/DAY (1 DROP IN BOTH EYES IN THE EVENING)
     Route: 047
     Dates: start: 202204
  2. LATANOPROST [Suspect]
     Active Substance: LATANOPROST
     Dosage: 2 DROP, 1X/DAY (1 DROP IN BOTH EYES IN THE EVENING)
     Route: 047
     Dates: start: 202204

REACTIONS (10)
  - Lacrimation increased [Recovering/Resolving]
  - Rash [Recovered/Resolved]
  - Eczema [Recovered/Resolved]
  - Dark circles under eyes [Not Recovered/Not Resolved]
  - Condition aggravated [Not Recovered/Not Resolved]
  - Hirsutism [Unknown]
  - Vision blurred [Unknown]
  - Eye pruritus [Recovering/Resolving]
  - Eye irritation [Recovering/Resolving]
  - Glycosylated haemoglobin increased [Unknown]

NARRATIVE: CASE EVENT DATE: 20220101
